FAERS Safety Report 4791299-0 (Version None)
Quarter: 2005Q4

REPORT INFORMATION
  Report Type: 
  Country: None (occurrence: None)
  Receive Date: 20051007
  Receipt Date: 20050930
  Transmission Date: 20060501
  Serious: Yes (Hospitalization)
  Sender: FDA-Public Use
  Company Number: 200513214FR

PATIENT
  Age: 57 Year
  Sex: Male

DRUGS (5)
  1. GLYBURIDE [Suspect]
     Indication: DIABETES MELLITUS NON-INSULIN-DEPENDENT
     Route: 048
     Dates: start: 19950101, end: 20050807
  2. MEDIATOR [Suspect]
     Route: 048
     Dates: end: 20050807
  3. ELISOR [Suspect]
     Route: 048
     Dates: end: 20050807
  4. GLUCOR [Suspect]
     Route: 048
     Dates: start: 19950101, end: 20050807
  5. HYTACAND [Suspect]
     Route: 048
     Dates: end: 20050807

REACTIONS (5)
  - BLOOD GLUCOSE ABNORMAL [None]
  - HYPERTENSION [None]
  - KETONURIA [None]
  - NEPHRITIS INTERSTITIAL [None]
  - RENAL FAILURE ACUTE [None]
